FAERS Safety Report 4709200-4 (Version None)
Quarter: 2005Q3

REPORT INFORMATION
  Report Type: 
  Country: None (occurrence: None)
  Receive Date: 20050707
  Receipt Date: 20050707
  Transmission Date: 20060218
  Serious: Yes (Death)
  Sender: FDA-Public Use
  Company Number: None

PATIENT
  Age: 91 Year
  Sex: Female
  Weight: 56.6996 kg

DRUGS (1)
  1. XANAX [Suspect]
     Indication: COMPLETED SUICIDE
     Dates: start: 20040115, end: 20040220

REACTIONS (2)
  - COMPLETED SUICIDE [None]
  - INTENTIONAL MISUSE [None]
